FAERS Safety Report 4319505-7 (Version None)
Quarter: 2004Q1

REPORT INFORMATION
  Report Type: 
  Country: None (occurrence: None)
  Receive Date: 20040318
  Receipt Date: 20040318
  Transmission Date: 20041129
  Serious: Yes (Life-Threatening)
  Sender: FDA-Public Use
  Company Number: None

PATIENT
  Age: 45 Year
  Sex: Female

DRUGS (15)
  1. ABILIFY [Suspect]
     Indication: SCHIZOPHRENIA
     Dosage: 15 MG PO BID
     Route: 048
  2. DURAGESIC [Concomitant]
  3. NEURONTIN [Concomitant]
  4. OXYCONTIN [Concomitant]
  5. LEXAPRO [Concomitant]
  6. WELCHOL [Concomitant]
  7. ESTRATEST [Concomitant]
  8. FLEXERIL [Concomitant]
  9. QUININE [Concomitant]
  10. FIBER-LAX [Concomitant]
  11. ADVAIR DISKUS 100/50 [Concomitant]
  12. FIORICET [Concomitant]
  13. ASTELIN [Concomitant]
  14. VIOXX [Concomitant]
  15. ALBUTEROL [Concomitant]

REACTIONS (13)
  - AGITATION [None]
  - BLOOD CREATINE PHOSPHOKINASE INCREASED [None]
  - CHEST PAIN [None]
  - DEPRESSED LEVEL OF CONSCIOUSNESS [None]
  - DROOLING [None]
  - HEART RATE INCREASED [None]
  - MENTAL STATUS CHANGES [None]
  - MUSCLE RIGIDITY [None]
  - NAUSEA [None]
  - NEUROLEPTIC MALIGNANT SYNDROME [None]
  - OVERDOSE [None]
  - SCREAMING [None]
  - VOMITING [None]
